FAERS Safety Report 22021774 (Version 1)
Quarter: 2023Q1

REPORT INFORMATION
  Report Type: Report from Study
  Country: DE (occurrence: DE)
  Receive Date: 20230222
  Receipt Date: 20230222
  Transmission Date: 20230418
  Serious: Yes (Other)
  Sender: FDA-Public Use
  Company Number: DE-TAKEDA-2023TUS018974

PATIENT
  Age: 24 Year
  Sex: Male
  Weight: 100 kg

DRUGS (17)
  1. LANADELUMAB [Suspect]
     Active Substance: LANADELUMAB
     Indication: Hereditary angioedema
     Dosage: 300 MILLIGRAM, Q2WEEKS
     Route: 065
     Dates: start: 20200213, end: 20200702
  2. LANADELUMAB [Suspect]
     Active Substance: LANADELUMAB
     Dosage: 300 MILLIGRAM
     Route: 065
     Dates: start: 20200703, end: 20200809
  3. LANADELUMAB [Suspect]
     Active Substance: LANADELUMAB
     Dosage: 300 MILLIGRAM
     Route: 065
     Dates: start: 20200810, end: 20200913
  4. LANADELUMAB [Suspect]
     Active Substance: LANADELUMAB
     Dosage: 300 MILLIGRAM
     Route: 065
     Dates: start: 20200914, end: 20210201
  5. LANADELUMAB [Suspect]
     Active Substance: LANADELUMAB
     Dosage: 300 MILLIGRAM
     Route: 065
     Dates: start: 20210202, end: 20210307
  6. LANADELUMAB [Suspect]
     Active Substance: LANADELUMAB
     Dosage: 300 MILLIGRAM
     Route: 065
     Dates: start: 20210308, end: 20210530
  7. LANADELUMAB [Suspect]
     Active Substance: LANADELUMAB
     Dosage: 300 MILLIGRAM
     Route: 065
     Dates: start: 20210531, end: 20210731
  8. LANADELUMAB [Suspect]
     Active Substance: LANADELUMAB
     Dosage: 300 MILLIGRAM
     Route: 065
     Dates: start: 20210801, end: 20220122
  9. LANADELUMAB [Suspect]
     Active Substance: LANADELUMAB
     Dosage: 300 MILLIGRAM
     Route: 065
     Dates: start: 20220123, end: 20220528
  10. LANADELUMAB [Suspect]
     Active Substance: LANADELUMAB
     Dosage: 300 MILLIGRAM
     Route: 065
     Dates: start: 20220529
  11. SYMBICORT [Concomitant]
     Active Substance: BUDESONIDE\FORMOTEROL FUMARATE DIHYDRATE
     Indication: Asthma
     Dosage: UNK
     Route: 055
     Dates: start: 20130211, end: 20220630
  12. FEXOFENADINE HYDROCHLORIDE [Concomitant]
     Active Substance: FEXOFENADINE HYDROCHLORIDE
     Indication: Asthma
     Dosage: 180 MILLIGRAM
     Route: 048
     Dates: start: 20200213
  13. COMIRNATY [Concomitant]
     Active Substance: TOZINAMERAN
     Indication: Immunisation
     Dosage: UNK
     Route: 030
     Dates: start: 20210618, end: 20210618
  14. COMIRNATY [Concomitant]
     Active Substance: TOZINAMERAN
     Dosage: UNK
     Route: 030
     Dates: start: 20210804, end: 20210804
  15. SPIRIVA [Concomitant]
     Active Substance: TIOTROPIUM BROMIDE MONOHYDRATE
     Indication: Asthma
     Dosage: UNK
     Route: 055
     Dates: start: 20220701
  16. FLUTICASONE FUROATE\VILANTEROL TRIFENATATE [Concomitant]
     Active Substance: FLUTICASONE FUROATE\VILANTEROL TRIFENATATE
     Indication: Asthma
     Dosage: UNK
     Route: 055
     Dates: start: 20220701
  17. AMOXICILLIN [Concomitant]
     Active Substance: AMOXICILLIN
     Indication: Pneumonia
     Dosage: 1000 MILLIGRAM
     Route: 048
     Dates: start: 20221128, end: 20221207

REACTIONS (1)
  - Pneumonia [Recovered/Resolved]

NARRATIVE: CASE EVENT DATE: 20221128
